FAERS Safety Report 17573398 (Version 1)
Quarter: 2020Q1

REPORT INFORMATION
  Report Type: Spontaneous
  Country: CA (occurrence: CA)
  Receive Date: 20200323
  Receipt Date: 20200323
  Transmission Date: 20200409
  Serious: Yes (Hospitalization, Other)
  Sender: FDA-Public Use
  Company Number: NVSC2020CA081055

PATIENT
  Age: 68 Year
  Sex: Male

DRUGS (6)
  1. ENBREL [Concomitant]
     Active Substance: ETANERCEPT
     Indication: PRODUCT USED FOR UNKNOWN INDICATION
     Dosage: UNK
     Route: 065
  2. SULFASALAZINE. [Concomitant]
     Active Substance: SULFASALAZINE
     Indication: PRODUCT USED FOR UNKNOWN INDICATION
     Dosage: 1.5 G, UNKNOWN
     Route: 065
  3. METHOTREXATE. [Suspect]
     Active Substance: METHOTREXATE
     Indication: PRODUCT USED FOR UNKNOWN INDICATION
     Dosage: 35 MG, QW
     Route: 065
  4. COSENTYX [Suspect]
     Active Substance: SECUKINUMAB
     Indication: PSORIATIC ARTHROPATHY
     Dosage: 150 MG, QW
     Route: 058
  5. LASIX [Concomitant]
     Active Substance: FUROSEMIDE
     Indication: PRODUCT USED FOR UNKNOWN INDICATION
     Dosage: UNK, QD
     Route: 065
  6. COSENTYX [Suspect]
     Active Substance: SECUKINUMAB
     Dosage: 150 MG, QMO
     Route: 058

REACTIONS (14)
  - Arthritis [Unknown]
  - Dyspnoea [Unknown]
  - Hypercapnia [Unknown]
  - Pain in extremity [Unknown]
  - Osteoarthritis [Unknown]
  - Pulse absent [Unknown]
  - Drug ineffective [Unknown]
  - Pain [Unknown]
  - Psoriasis [Unknown]
  - Fluid retention [Unknown]
  - Musculoskeletal stiffness [Unknown]
  - Hypokinesia [Unknown]
  - Presyncope [Unknown]
  - Sleep apnoea syndrome [Unknown]
